FAERS Safety Report 5750743-2 (Version None)
Quarter: 2008Q2

REPORT INFORMATION
  Report Type: 
  Country: None (occurrence: None)
  Receive Date: 20080523
  Receipt Date: 20080523
  Transmission Date: 20081010
  Serious: Yes (Other)
  Sender: FDA-Public Use
  Company Number: None

PATIENT
  Sex: Female

DRUGS (1)
  1. NICOTINE [Suspect]
     Indication: SMOKING CESSATION THERAPY
     Dosage: 21MG ONE QD TOPICAL
     Route: 061
     Dates: start: 20080425, end: 20080510

REACTIONS (2)
  - RASH ERYTHEMATOUS [None]
  - SKIN IRRITATION [None]
